FAERS Safety Report 16265107 (Version 1)
Quarter: 2019Q2

REPORT INFORMATION
  Report Type: Report from Study
  Country: US (occurrence: US)
  Receive Date: 20190502
  Receipt Date: 20190502
  Transmission Date: 20190711
  Serious: No
  Sender: FDA-Public Use
  Company Number: US-RETROPHIN, INC.-2018RTN00049

PATIENT
  Sex: Male

DRUGS (7)
  1. CHOLBAM [Suspect]
     Active Substance: CHOLIC ACID
     Indication: ADRENOGENITAL SYNDROME
     Dosage: 250 MG, 1X/DAY
     Dates: start: 2015
  2. ADDERALL [Suspect]
     Active Substance: AMPHETAMINE ASPARTATE\AMPHETAMINE SULFATE\DEXTROAMPHETAMINE SACCHARATE\DEXTROAMPHETAMINE SULFATE
     Indication: ATTENTION DEFICIT/HYPERACTIVITY DISORDER
     Dosage: UNK
  3. CLONIDINE. [Suspect]
     Active Substance: CLONIDINE
     Indication: ATTENTION DEFICIT/HYPERACTIVITY DISORDER
  4. CHOLBAM [Suspect]
     Active Substance: CHOLIC ACID
     Dosage: 100 MG, 1X/DAY
     Route: 065
     Dates: start: 2015
  5. CHOLBAM [Suspect]
     Active Substance: CHOLIC ACID
     Dosage: 100 MG, 1X/DAY
     Route: 065
  6. CHOLBAM [Suspect]
     Active Substance: CHOLIC ACID
     Dosage: 250 MG, 1X/DAY
     Route: 065
  7. CHOLBAM [Suspect]
     Active Substance: CHOLIC ACID
     Indication: ADRENOGENITAL SYNDROME
     Dosage: 350 MG, 1X/DAY
     Route: 065
     Dates: start: 20150506, end: 2015

REACTIONS (3)
  - Rash pruritic [Recovering/Resolving]
  - Dermatitis [Recovering/Resolving]
  - Skin discolouration [Recovering/Resolving]

NARRATIVE: CASE EVENT DATE: 2018
